FAERS Safety Report 6416352-7 (Version None)
Quarter: 2009Q4

REPORT INFORMATION
  Report Type: 
  Country: None (occurrence: None)
  Receive Date: 20091027
  Receipt Date: 20091020
  Transmission Date: 20100525
  Serious: Yes (Life-Threatening, Other)
  Sender: FDA-Public Use
  Company Number: BE-PFIZER INC-2008072863

PATIENT
  Age: 13 Month

DRUGS (8)
  1. LIPITOR [Suspect]
     Indication: HYPERCHOLESTEROLAEMIA
     Route: 048
     Dates: start: 20080806, end: 20080812
  2. LIPITOR [Suspect]
     Dosage: 2.5 MG, 1X/DAY
     Route: 048
     Dates: start: 20081110, end: 20090101
  3. LIPITOR [Suspect]
     Dosage: 3.75 MG, 1X/DAY
     Route: 048
     Dates: start: 20090101, end: 20090801
  4. EZETROL [Interacting]
     Indication: HYPERCHOLESTEROLAEMIA
     Route: 048
     Dates: start: 20080806, end: 20080812
  5. EZETROL [Interacting]
     Dosage: 7.5 MG, 1X/DAY
     Route: 048
     Dates: start: 20081001, end: 20081110
  6. EZETROL [Interacting]
     Dosage: 10 MG, 1X/DAY
     Route: 048
     Dates: start: 20081101, end: 20081112
  7. EZETROL [Interacting]
     Dosage: 5 MG, 1X/DAY
     Route: 048
     Dates: start: 20090101, end: 20090801
  8. EZETROL [Interacting]
     Dosage: 1 MG, 1X/DAY
     Route: 048
     Dates: start: 20090801

REACTIONS (5)
  - BACTERIAL DISEASE CARRIER [None]
  - DRUG INTERACTION [None]
  - HEPATIC FUNCTION ABNORMAL [None]
  - HEPATITIS FULMINANT [None]
  - XANTHOMA [None]
